FAERS Safety Report 17059972 (Version 3)
Quarter: 2019Q4

REPORT INFORMATION
  Report Type: Spontaneous
  Country: AU (occurrence: AU)
  Receive Date: 20191121
  Receipt Date: 20191203
  Transmission Date: 20200122
  Serious: Yes (Hospitalization, Other)
  Sender: FDA-Public Use
  Company Number: AU-ABBVIE-19K-008-3006493-00

PATIENT
  Age: 72 Year
  Sex: Female
  Weight: 46 kg

DRUGS (1)
  1. DUODOPA [Suspect]
     Active Substance: CARBIDOPA\LEVODOPA
     Indication: PARKINSON^S DISEASE
     Dosage: VARIOUS ?FREQUENCY TEXT - 0600-2200 HOURS
     Route: 050
     Dates: start: 20190718, end: 20191019

REACTIONS (5)
  - Pyrexia [Unknown]
  - Fall [Unknown]
  - Stoma site extravasation [Unknown]
  - Abdominal wall abscess [Recovered/Resolved]
  - Sepsis [Unknown]

NARRATIVE: CASE EVENT DATE: 2019
